FAERS Safety Report 4543637-1 (Version None)
Quarter: 2005Q1

REPORT INFORMATION
  Report Type: 
  Country: None (occurrence: None)
  Receive Date: 20050103
  Receipt Date: 20040807
  Transmission Date: 20050727
  Serious: Yes (Hospitalization)
  Sender: FDA-Public Use
  Company Number: PHHO2004US11255

PATIENT
  Age: 35 Year
  Sex: Male
  Weight: 84 kg

DRUGS (32)
  1. SOLU-MEDROL [Suspect]
     Indication: RENAL TRANSPLANT
     Dosage: 24 MG, QD
     Route: 042
     Dates: start: 20040818, end: 20040818
  2. SOLU-MEDROL [Suspect]
     Dosage: 15 MG, QD
     Route: 042
     Dates: start: 20041211, end: 20041216
  3. SOLU-MEDROL [Suspect]
     Dosage: 200 MG, QD
     Route: 042
     Dates: start: 20040814, end: 20040814
  4. SOLU-MEDROL [Suspect]
     Dosage: 24 MG, QD
     Route: 048
     Dates: start: 20040819, end: 20040823
  5. SOLU-MEDROL [Suspect]
     Dosage: 500 MG, QD
     Route: 042
     Dates: start: 20040828, end: 20040830
  6. SOLU-MEDROL [Suspect]
     Dosage: 500 MG, QD
     Route: 042
     Dates: start: 20040729, end: 20040729
  7. SOLU-MEDROL [Suspect]
     Dosage: 200 MG, QD
     Route: 042
     Dates: start: 20040730, end: 20040730
  8. SOLU-MEDROL [Suspect]
     Dosage: 180 MG, QD
     Route: 042
     Dates: start: 20040731, end: 20040731
  9. PREDNISONE [Suspect]
     Indication: RENAL TRANSPLANT
     Dosage: 40 MG, QD
     Route: 048
     Dates: start: 20040818, end: 20040818
  10. PREDNISONE [Suspect]
     Dosage: 75 - 100 MG / DAY
     Route: 048
     Dates: start: 20040815, end: 20040816
  11. PREDNISONE [Suspect]
     Dosage: 25 MG, QD
     Route: 048
     Dates: start: 20040824, end: 20040827
  12. PREDNISONE [Suspect]
     Dosage: 15 - 20 MG / DAY
     Route: 048
     Dates: start: 20040928, end: 20041210
  13. PREDNISONE [Suspect]
     Dosage: 10 MG, QD
     Route: 048
     Dates: start: 20041217
  14. PREDNISONE [Suspect]
     Dosage: 50 - 200 MG / DAY
     Route: 048
     Dates: start: 20040801, end: 20040805
  15. PREDNISONE [Suspect]
     Dosage: 30 - 40 MG / DAY
     Route: 048
     Dates: start: 20040806, end: 20040807
  16. NEORAL [Suspect]
     Indication: RENAL TRANSPLANT
     Dosage: 25 MG
     Route: 042
     Dates: start: 20040818, end: 20040818
  17. NEORAL [Suspect]
     Dosage: 200 MG
     Route: 048
     Dates: start: 20040823, end: 20040823
  18. NEORAL [Suspect]
     Dosage: 275 MG / DAY
     Route: 048
     Dates: start: 20040806, end: 20040806
  19. NEORAL [Suspect]
     Dosage: 25 - 75 MG / DAY
     Route: 042
     Dates: start: 20040807, end: 20040812
  20. NEORAL [Suspect]
     Dosage: 100 - 400 MG / DAY
     Route: 048
     Dates: start: 20040813, end: 20040817
  21. NEORAL [Suspect]
     Dosage: 200 MG
     Route: 048
     Dates: start: 20040818, end: 20040818
  22. NEORAL [Suspect]
     Dosage: 20 - 40 MG / DAY
     Route: 042
     Dates: start: 20040819, end: 20040822
  23. NEORAL [Suspect]
     Dosage: 40 MG
     Route: 042
     Dates: start: 20040823, end: 20040823
  24. NEORAL [Suspect]
     Dosage: 100 - 400 MG / DAY
     Route: 048
     Dates: start: 20040824
  25. NEORAL [Suspect]
     Dosage: 525 - 650 MG / DAY
     Route: 048
     Dates: start: 20040729, end: 20040805
  26. GENTAMICIN [Concomitant]
  27. AMPICILLIN [Concomitant]
  28. FTY720 VS MYCOPHENOLATE MOFETIL [Suspect]
     Indication: RENAL TRANSPLANT
     Dosage: CODE NOT BROKEN
     Route: 048
     Dates: start: 20040729, end: 20040805
  29. FTY720 VS MYCOPHENOLATE MOFETIL [Suspect]
     Dosage: CODE NOT BROKEN
     Route: 048
     Dates: start: 20040805, end: 20040807
  30. FTY720 VS MYCOPHENOLATE MOFETIL [Suspect]
     Dosage: CODE NOT BROKEN
     Route: 048
     Dates: start: 20040809, end: 20040810
  31. FTY720 VS MYCOPHENOLATE MOFETIL [Suspect]
     Dosage: CODE NOT BROKEN (HALF DOSE)
     Dates: start: 20040811, end: 20040818
  32. FTY720 VS MYCOPHENOLATE MOFETIL [Suspect]
     Dosage: CODE NOT BROKEN
     Route: 048
     Dates: start: 20040825, end: 20041212

REACTIONS (21)
  - ABDOMINAL PAIN [None]
  - ANOREXIA [None]
  - BLOOD CREATININE INCREASED [None]
  - CONSTIPATION [None]
  - DEHYDRATION [None]
  - DUODENITIS [None]
  - FLUID INTAKE REDUCED [None]
  - GASTRITIS [None]
  - HYPOTENSION [None]
  - IMMUNOSUPPRESSION [None]
  - MEDICATION ERROR [None]
  - NAUSEA [None]
  - OESOPHAGITIS ULCERATIVE [None]
  - PERITONITIS [None]
  - PYREXIA [None]
  - STAPHYLOCOCCAL INFECTION [None]
  - TACHYCARDIA [None]
  - TREATMENT NONCOMPLIANCE [None]
  - URINE OUTPUT DECREASED [None]
  - VOMITING [None]
  - WEIGHT DECREASED [None]
